FAERS Safety Report 7570866-5 (Version None)
Quarter: 2011Q2

REPORT INFORMATION
  Report Type: 
  Country: None (occurrence: None)
  Receive Date: 20110624
  Receipt Date: 20110622
  Transmission Date: 20111010
  Serious: Yes (Life-Threatening, Hospitalization)
  Sender: FDA-Public Use
  Company Number: US-B.I. PHARMACEUTICALS,INC./RIDGEFIELD-2011-BP-12482BP

PATIENT
  Age: 79 Year
  Sex: Female
  Weight: 67.59 kg

DRUGS (8)
  1. NEXIUM [Concomitant]
     Dosage: 40 MG
     Route: 048
  2. PRADAXA [Suspect]
     Indication: CEREBROVASCULAR ACCIDENT PROPHYLAXIS
  3. TOPROL-XL [Concomitant]
     Dosage: 25 MG
     Route: 048
  4. PRAVASTATIN [Concomitant]
     Dosage: 40 MG
     Route: 048
  5. PRADAXA [Suspect]
     Indication: ATRIAL FIBRILLATION
     Dosage: 300 MG
     Dates: start: 20110105, end: 20110422
  6. MICARDIS [Concomitant]
     Dosage: 80 MG
     Route: 048
  7. BONIVA [Concomitant]
     Dosage: 150 MG
     Route: 048
  8. FLUTAMIDE [Concomitant]
     Dosage: 100 MG
     Route: 048

REACTIONS (2)
  - HYPERTENSIVE CRISIS [None]
  - HAEMORRHAGE INTRACRANIAL [None]
